FAERS Safety Report 23887025 (Version 1)
Quarter: 2024Q2

REPORT INFORMATION
  Report Type: Spontaneous
  Country: CA (occurrence: CA)
  Receive Date: 20240523
  Receipt Date: 20240523
  Transmission Date: 20240716
  Serious: Yes (Hospitalization)
  Sender: FDA-Public Use
  Company Number: CA-AUROBINDO-AUR-APL-2024-024105

PATIENT
  Age: 46 Year
  Sex: Female

DRUGS (5)
  1. HYDROCORTISONE [Suspect]
     Active Substance: HYDROCORTISONE
     Indication: Infusion related reaction
     Dosage: 200 MILLIGRAM
     Route: 042
  2. DIPHENHYDRAMINE [Suspect]
     Active Substance: DIPHENHYDRAMINE
     Indication: Infusion related reaction
     Dosage: 50.0 MILLILITER
     Route: 042
  3. CETIRIZINE [Suspect]
     Active Substance: CETIRIZINE HYDROCHLORIDE
     Indication: Infusion related reaction
     Dosage: 10 MILLIGRAM
     Route: 048
  4. REMICADE [Suspect]
     Active Substance: INFLIXIMAB
     Indication: Crohn^s disease
     Dosage: 5 MILLIGRAM/KILOGRAM, 1 EVERY 8 WEEKS
     Route: 042
  5. TYLENOL [Suspect]
     Active Substance: ACETAMINOPHEN
     Indication: Infusion related reaction
     Dosage: 650 MILLIGRAM
     Route: 065

REACTIONS (9)
  - Infusion related reaction [Recovered/Resolved]
  - Arthralgia [Recovered/Resolved]
  - Back pain [Recovered/Resolved]
  - Drug specific antibody present [Recovered/Resolved]
  - Heart rate increased [Recovered/Resolved]
  - Motor dysfunction [Recovered/Resolved]
  - Pain in extremity [Recovered/Resolved]
  - Sensory loss [Recovered/Resolved]
  - Drug intolerance [Recovered/Resolved]
